FAERS Safety Report 15131593 (Version 1)
Quarter: 2018Q3

REPORT INFORMATION
  Report Type: Report from Study
  Country: US (occurrence: US)
  Receive Date: 20180711
  Receipt Date: 20180711
  Transmission Date: 20181010
  Serious: Yes (Hospitalization)
  Sender: FDA-Public Use
  Company Number: US-EISAI MEDICAL RESEARCH-EC-2018-040670

PATIENT
  Age: 72 Year
  Sex: Female

DRUGS (5)
  1. LENVIMA [Suspect]
     Active Substance: LENVATINIB
     Indication: RECTAL CANCER
     Route: 048
     Dates: start: 20180524, end: 201806
  2. LENVIMA [Suspect]
     Active Substance: LENVATINIB
     Route: 048
     Dates: start: 20180629
  3. NORVASC [Concomitant]
     Active Substance: AMLODIPINE BESYLATE
  4. TYLENOL [Concomitant]
     Active Substance: ACETAMINOPHEN
  5. AFINITOR [Concomitant]
     Active Substance: EVEROLIMUS

REACTIONS (6)
  - Product use in unapproved indication [Not Recovered/Not Resolved]
  - Haemorrhage [Not Recovered/Not Resolved]
  - Rectal discharge [Recovered/Resolved]
  - Blood pressure diastolic increased [Not Recovered/Not Resolved]
  - Headache [Not Recovered/Not Resolved]
  - Urinary tract infection [Not Recovered/Not Resolved]

NARRATIVE: CASE EVENT DATE: 201806
